FAERS Safety Report 12335535 (Version 1)
Quarter: 2016Q2

REPORT INFORMATION
  Report Type: Spontaneous
  Country: DE (occurrence: DE)
  Receive Date: 20160505
  Receipt Date: 20160505
  Transmission Date: 20160815
  Serious: Yes (Other)
  Sender: FDA-Public Use
  Company Number: DE-AUROBINDO-AUR-APL-2016-05384

PATIENT
  Age: 1 Day
  Sex: Female
  Weight: 1.82 kg

DRUGS (8)
  1. FRAGMIN [Concomitant]
     Active Substance: DALTEPARIN SODIUM
     Indication: FACTOR V LEIDEN MUTATION
     Dosage: 7500 IU DAILY
     Route: 064
     Dates: start: 20150314, end: 20151013
  2. ERYTHROMYCIN. [Concomitant]
     Active Substance: ERYTHROMYCIN
     Indication: CHLAMYDIAL INFECTION
     Route: 064
  3. ASPIRIN. [Concomitant]
     Active Substance: ASPIRIN
     Indication: FACTOR V LEIDEN MUTATION
     Dosage: 100 MG, DAILY
     Route: 064
     Dates: start: 20150318, end: 20151013
  4. SERTRALINE [Suspect]
     Active Substance: SERTRALINE HYDROCHLORIDE
     Indication: DEPRESSION
     Dosage: UNK
     Route: 064
     Dates: start: 20150210, end: 20151013
  5. L-THYROXIN [Concomitant]
     Active Substance: LEVOTHYROXINE SODIUM
     Indication: HYPOTHYROIDISM
     Dosage: 175 MCG, DAILY
     Route: 064
     Dates: start: 20150210, end: 20151013
  6. METFORMIN [Concomitant]
     Active Substance: METFORMIN HYDROCHLORIDE
     Indication: POLYCYSTIC OVARIES
     Dosage: 1000 MG, DAILY
     Route: 064
  7. CABERGOLIN 1A PHARMA [Concomitant]
     Indication: PROLACTINOMA
     Dosage: 1.5 MG, EVERY WEEK
     Route: 064
  8. FEMIBION                           /01597501/ [Concomitant]
     Active Substance: CALCIUM PHOSPHATE, DIBASIC, ANHYDROUS\FERROUS SUCCINATE\MAGNESIUM HYDROXIDE
     Indication: PROPHYLAXIS OF NEURAL TUBE DEFECT
     Dosage: 0.8 MG, DAILY
     Route: 064
     Dates: start: 20150210, end: 20151013

REACTIONS (6)
  - Temperature regulation disorder [Recovered/Resolved]
  - Foetal exposure during pregnancy [Unknown]
  - Restlessness [Recovered/Resolved]
  - Small for dates baby [Recovered/Resolved]
  - Infantile haemangioma [Not Recovered/Not Resolved]
  - Selective eating disorder [Recovered/Resolved]

NARRATIVE: CASE EVENT DATE: 20151013
